FAERS Safety Report 9992760 (Version 1)
Quarter: 2014Q1

REPORT INFORMATION
  Report Type: Report from Study
  Country: US (occurrence: US)
  Receive Date: 20140310
  Receipt Date: 20140310
  Transmission Date: 20141002
  Serious: No
  Sender: FDA-Public Use
  Company Number: US-ABBVIE-13P-163-1133529-00

PATIENT
  Age: 34 Year
  Sex: Female

DRUGS (4)
  1. LUPRON DEPOT [Suspect]
     Indication: ENDOMETRIOSIS
     Dates: start: 20130726
  2. UNKNOWN PAIN MEDICATION [Concomitant]
     Indication: PAIN
     Dosage: AS NEEDED
     Dates: start: 201306
  3. MOTRIN [Concomitant]
     Indication: PAIN
     Dosage: 600 MG 1 TABLET EVERY 4 HOURS AS NEEDED
  4. MULTIVITAMIN [Concomitant]
     Indication: PRODUCT USED FOR UNKNOWN INDICATION

REACTIONS (1)
  - Hot flush [Not Recovered/Not Resolved]
